FAERS Safety Report 4310760-6 (Version None)
Quarter: 2004Q1

REPORT INFORMATION
  Report Type: 
  Country: None (occurrence: None)
  Receive Date: 20040303
  Receipt Date: 20040223
  Transmission Date: 20041129
  Serious: Yes (Death, Hospitalization, Disabling)
  Sender: FDA-Public Use
  Company Number: WAES 0402USA01742

PATIENT
  Age: 21 Year
  Sex: Male
  Weight: 64 kg

DRUGS (1)
  1. STROMECTOL [Suspect]
     Route: 048
     Dates: start: 20031130, end: 20031130

REACTIONS (8)
  - ASTHENIA [None]
  - COMA [None]
  - ENCEPHALOPATHY [None]
  - HEADACHE [None]
  - HYPERTHERMIA [None]
  - HYPOTENSION [None]
  - PYREXIA [None]
  - VERTIGO [None]
